FAERS Safety Report 7818533-4 (Version None)
Quarter: 2011Q4

REPORT INFORMATION
  Report Type: 
  Country: None (occurrence: None)
  Receive Date: 20111017
  Receipt Date: 20111010
  Transmission Date: 20120403
  Serious: Yes (Hospitalization)
  Sender: FDA-Public Use
  Company Number: SA-ROCHE-1004794

PATIENT
  Sex: Female

DRUGS (2)
  1. XOLAIR [Suspect]
     Indication: ASTHMA
     Route: 058
     Dates: start: 20111008
  2. FLUTICASONE PROPIONATE/SALMETEROL [Concomitant]

REACTIONS (2)
  - TACHYCARDIA [None]
  - HYPOTENSION [None]
